FAERS Safety Report 11631322 (Version 1)
Quarter: 2015Q4

REPORT INFORMATION
  Report Type: Spontaneous
  Country: IL (occurrence: IL)
  Receive Date: 20151014
  Receipt Date: 20151014
  Transmission Date: 20160304
  Serious: Yes (Hospitalization)
  Sender: FDA-Public Use
  Company Number: PHHY2015IL120727

PATIENT
  Age: 1 Year
  Sex: Male

DRUGS (4)
  1. CICLOSPORIN [Suspect]
     Active Substance: CYCLOSPORINE
     Indication: PRODUCT USED FOR UNKNOWN INDICATION
     Dosage: 3 MG/KG, IN DIVIDED DOSES QD
     Route: 042
  2. SILDENAFIL. [Concomitant]
     Active Substance: SILDENAFIL
     Indication: PULMONARY ARTERIAL HYPERTENSION
     Route: 048
  3. BOSENTAN [Interacting]
     Active Substance: BOSENTAN
     Indication: PULMONARY ARTERIAL HYPERTENSION
     Dosage: 3 MG/KG, QD
     Route: 048
  4. CICLOSPORIN [Interacting]
     Active Substance: CYCLOSPORINE
     Dosage: 7 MG/KG, QD
     Route: 042

REACTIONS (2)
  - Drug interaction [Recovered/Resolved]
  - Chemotherapeutic drug level below therapeutic [Recovered/Resolved]
